FAERS Safety Report 8222467-3 (Version None)
Quarter: 2012Q1

REPORT INFORMATION
  Report Type: 
  Country: None (occurrence: None)
  Receive Date: 20120320
  Receipt Date: 20120305
  Transmission Date: 20120608
  Serious: Yes (Other)
  Sender: FDA-Public Use
  Company Number: PHHY2012JP020444

PATIENT
  Age: 30 Year
  Sex: Female

DRUGS (6)
  1. ANTI-THYMOCYTE GLOBULIN EQUINE NOS [Concomitant]
     Dosage: UNK UKN, UNK
  2. METHOTREXATE [Concomitant]
     Dosage: UNK UKN, UNK
  3. PREDNISOLONE [Concomitant]
     Dosage: UNK UKN, UNK
  4. CYCLOPHOSPHAMIDE [Concomitant]
     Dosage: UNK UKN, UNK
  5. CYCLOSPORINE [Suspect]
     Indication: STEM CELL TRANSPLANT
     Dosage: UNK UKN, UNK
  6. FLUDARABINE PHOSPHATE [Concomitant]
     Dosage: UNK UKN, UNK

REACTIONS (2)
  - ACUTE GRAFT VERSUS HOST DISEASE [None]
  - RETINAL HAEMORRHAGE [None]
